FAERS Safety Report 8175767-X (Version None)
Quarter: 2012Q1

REPORT INFORMATION
  Report Type: 
  Country: None (occurrence: None)
  Receive Date: 20120228
  Receipt Date: 20120228
  Transmission Date: 20120608
  Serious: Yes (Other)
  Sender: FDA-Public Use
  Company Number: None

PATIENT
  Sex: Male
  Weight: 30.8446 kg

DRUGS (2)
  1. CLONAZEPAM [Suspect]
     Dosage: 5 MG 1 QHS
     Dates: start: 20100401
  2. DIVALPROEX SODIUM [Suspect]
     Dosage: 125 MG 2 TABS BID OFF AND ON TO PRESENT
     Dates: start: 20080420

REACTIONS (3)
  - CONVULSION [None]
  - AGGRESSION [None]
  - PSYCHOMOTOR HYPERACTIVITY [None]
